FAERS Safety Report 8920733 (Version 2)
Quarter: 2013Q2

REPORT INFORMATION
  Report Type: Report from Study
  Country: US (occurrence: US)
  Receive Date: 20121122
  Receipt Date: 20130416
  Transmission Date: 20140414
  Serious: Yes (Other)
  Sender: FDA-Public Use
  Company Number: US-AMGEN-USACT2012074294

PATIENT
  Age: 23 Year
  Sex: Female

DRUGS (1)
  1. PEGFILGRASTIM [Suspect]
     Indication: NEUTROPENIA

REACTIONS (1)
  - Anaphylactic reaction [Recovered/Resolved]
